FAERS Safety Report 6146608-7 (Version None)
Quarter: 2009Q2

REPORT INFORMATION
  Report Type: 
  Country: None (occurrence: None)
  Receive Date: 20090406
  Receipt Date: 20090406
  Transmission Date: 20091009
  Serious: Yes (Other)
  Sender: FDA-Public Use
  Company Number: None

PATIENT
  Sex: Female
  Weight: 74.3899 kg

DRUGS (4)
  1. LAMOTRIGINE [Suspect]
     Indication: BIPOLAR II DISORDER
     Dosage: ORAL 75 MG BID OCC, 100MG BID NOT BEFORE HER (PT DID HER OWN INCREASE)
     Dates: start: 20081227
  2. VIVACTAL [Concomitant]
  3. ORAP [Concomitant]
  4. KLONOPIN [Concomitant]

REACTIONS (3)
  - ANXIETY [None]
  - THERAPEUTIC RESPONSE UNEXPECTED WITH DRUG SUBSTITUTION [None]
  - THERAPY REGIMEN CHANGED [None]
